FAERS Safety Report 7089957-0 (Version None)
Quarter: 2010Q4

REPORT INFORMATION
  Report Type: 
  Country: None (occurrence: None)
  Receive Date: 20101108
  Receipt Date: 20101101
  Transmission Date: 20110411
  Serious: Yes (Other)
  Sender: FDA-Public Use
  Company Number: US-ABBOTT-10P-163-0683004-00

PATIENT
  Sex: Female
  Weight: 52.21 kg

DRUGS (6)
  1. HUMIRA [Suspect]
     Indication: CROHN'S DISEASE
     Route: 058
     Dates: start: 20070101, end: 20080601
  2. HUMIRA [Suspect]
     Route: 058
     Dates: start: 20090201
  3. HUMIRA [Suspect]
     Route: 058
  4. ADVAIR DISKUS 100/50 [Concomitant]
     Indication: ASTHMA
     Route: 055
     Dates: start: 20000101
  5. YAZ [Concomitant]
     Indication: ENDOMETRIOSIS
  6. SINGULAIR [Concomitant]
     Indication: ASTHMA

REACTIONS (3)
  - FISTULA [None]
  - INFLAMMATION [None]
  - PYREXIA [None]
